FAERS Safety Report 10753156 (Version 2)
Quarter: 2015Q2

REPORT INFORMATION
  Report Type: Spontaneous
  Country: US (occurrence: US)
  Receive Date: 20150130
  Receipt Date: 20150402
  Transmission Date: 20150821
  Serious: Yes (Life-Threatening, Hospitalization)
  Sender: FDA-Public Use
  Company Number: US-ACTELION-A-US2015-111731

PATIENT
  Age: 77 Year
  Sex: Male

DRUGS (8)
  1. MAGNESIUM GLUCONATE [Concomitant]
     Active Substance: MAGNESIUM GLUCONATE
     Dosage: UNK
  2. TARGRETIN [Concomitant]
     Active Substance: BEXAROTENE
     Dosage: UNK
  3. SILVADENE [Concomitant]
     Active Substance: SILVER SULFADIAZINE
     Dosage: UNK
  4. TRIAMCINOLONE ACETONIDE. [Concomitant]
     Active Substance: TRIAMCINOLONE ACETONIDE
     Dosage: UNK
  5. METOPROLOL TARTRATE. [Concomitant]
     Active Substance: METOPROLOL TARTRATE
     Dosage: 25 MG, UNK
  6. NIASPAN [Concomitant]
     Active Substance: NIACIN
     Dosage: 1000 MG, UNK
  7. VITAMIN D3 [Concomitant]
     Active Substance: CHOLECALCIFEROL
     Dosage: 1000 U, UNK
  8. VALCHLOR [Suspect]
     Active Substance: MECHLORETHAMINE
     Indication: MYCOSIS FUNGOIDES
     Dosage: UNK UNK, QD
     Route: 061
     Dates: start: 20141215

REACTIONS (4)
  - Posture abnormal [Unknown]
  - Mental status changes [Recovering/Resolving]
  - Confusional state [Recovering/Resolving]
  - Asthenia [Unknown]

NARRATIVE: CASE EVENT DATE: 20150107
